FAERS Safety Report 10562392 (Version 14)
Quarter: 2018Q4

REPORT INFORMATION
  Report Type: Report from Study
  Country: BR (occurrence: BR)
  Receive Date: 20141104
  Receipt Date: 20181130
  Transmission Date: 20190204
  Serious: Yes (Life-Threatening, Hospitalization, Other)
  Sender: FDA-Public Use
  Company Number: PHHY2014BR143072

PATIENT
  Age: 46 Year
  Sex: Male
  Weight: 90 kg

DRUGS (27)
  1. SANDOSTATIN LAR DEPOT [Suspect]
     Active Substance: OCTREOTIDE ACETATE
     Indication: ACROMEGALY
     Dosage: 30 MG, QMO
     Route: 030
     Dates: start: 1997
  2. SANDOSTATIN LAR DEPOT [Suspect]
     Active Substance: OCTREOTIDE ACETATE
     Dosage: 10 MG, UNK
     Route: 030
     Dates: start: 2006
  3. SANDOSTATIN LAR DEPOT [Suspect]
     Active Substance: OCTREOTIDE ACETATE
     Dosage: 30 MG, QMO, MONTHLY
     Route: 030
     Dates: end: 2015
  4. CABERGOLINE. [Concomitant]
     Active Substance: CABERGOLINE
     Dosage: 2 DF, UNK (2 TABLETS 3 TIMES A WEEK)
     Route: 048
  5. DURATESTON [Concomitant]
     Active Substance: TESTOSTERONE
     Indication: ERECTILE DYSFUNCTION
     Dosage: 1 DF (INJECTION/AMPOULE), EVERY 21 DAYS
     Route: 030
     Dates: start: 1997
  6. LEVOTHYROXINE. [Concomitant]
     Active Substance: LEVOTHYROXINE
     Indication: HYPERTHYROIDISM
  7. PURAN [Concomitant]
     Active Substance: LEVOTHYROXINE SODIUM
     Indication: HYPOTHYROIDISM
     Dosage: 1 DF (100 MG), QD (IN 1 HOUR FASTING)
     Route: 048
     Dates: start: 1994
  8. PREDNISONE. [Concomitant]
     Active Substance: PREDNISONE
     Indication: ACROMEGALY
  9. DURATESTON [Concomitant]
     Active Substance: TESTOSTERONE
     Indication: BLOOD TESTOSTERONE DECREASED
  10. SINVASTATINA [Concomitant]
     Active Substance: SIMVASTATIN
     Dosage: 40 MG, QD (1 TABLET A DAY)
     Route: 048
  11. OMEPRAZOLE. [Concomitant]
     Active Substance: OMEPRAZOLE
     Indication: GASTRIC DISORDER
     Dosage: UNK
     Route: 065
     Dates: start: 201402, end: 201403
  12. SANDOSTATIN LAR DEPOT [Suspect]
     Active Substance: OCTREOTIDE ACETATE
     Dosage: 120 MG, QMO
     Route: 030
     Dates: start: 2015
  13. BROMOPRIDA [Concomitant]
     Indication: GASTRIC DISORDER
     Dosage: UNK
     Route: 065
     Dates: start: 201402, end: 201403
  14. LEVOTHYROXINE. [Concomitant]
     Active Substance: LEVOTHYROXINE
     Indication: THYROID DISORDER
     Dosage: 1 DF, QD
     Route: 048
  15. SANDOSTATIN LAR DEPOT [Suspect]
     Active Substance: OCTREOTIDE ACETATE
     Dosage: 40 MG, QMO (2 APPLICATIONS OF 20 MG)
     Route: 030
  16. PHENYTOIN. [Concomitant]
     Active Substance: PHENYTOIN
     Indication: SEIZURE
     Dosage: 2 DF (400 MG), QD
     Route: 048
     Dates: start: 2014
  17. CABERGOLINE. [Concomitant]
     Active Substance: CABERGOLINE
     Indication: HYPERPROLACTINAEMIA
     Dosage: 2 DF, QW (MONDAY WEDNESDAY AND FRIDAY)
     Route: 048
     Dates: start: 1995
  18. CITONEURIN [Concomitant]
     Active Substance: CYANOCOBALAMIN\PYRIDOXINE HYDROCHLORIDE\THIAMINE
     Indication: PAIN
     Dosage: 1 DF, UNK (EVERY FOUR MONTHS)
     Route: 030
     Dates: start: 20170225
  19. PURAN [Concomitant]
     Active Substance: LEVOTHYROXINE SODIUM
     Dosage: 1 DF (125 MG), QD (IN FASTING IN THE MORNING)
     Route: 048
  20. PURAN [Concomitant]
     Active Substance: LEVOTHYROXINE SODIUM
     Dosage: 150 MG, QD
     Route: 048
  21. PREDNISONE. [Concomitant]
     Active Substance: PREDNISONE
     Indication: INFLAMMATION
     Dosage: 1 DF, QD
     Route: 048
  22. SINVASTATINA [Concomitant]
     Active Substance: SIMVASTATIN
     Indication: BLOOD CHOLESTEROL INCREASED
     Dosage: 2 DF (20 MG), QD
     Route: 048
  23. CITONEURIN [Concomitant]
     Active Substance: CYANOCOBALAMIN\PYRIDOXINE HYDROCHLORIDE\THIAMINE
     Indication: PAIN IN EXTREMITY
     Dosage: 1 DF, EVERY 3 MONTHS
     Route: 030
     Dates: start: 1995
  24. SANDOSTATIN LAR DEPOT [Suspect]
     Active Substance: OCTREOTIDE ACETATE
     Dosage: 40 MG, UNK
     Route: 030
  25. DURATESTON [Concomitant]
     Active Substance: TESTOSTERONE
     Indication: HORMONE REPLACEMENT THERAPY
  26. DEPOSTERON [Concomitant]
     Active Substance: TESTOSTERONE
     Indication: PRODUCT USED FOR UNKNOWN INDICATION
     Dosage: 1 DF (200 MG), EVERY 21 DAYS
     Route: 030
     Dates: start: 1997
  27. SANDOSTATIN LAR DEPOT [Suspect]
     Active Substance: OCTREOTIDE ACETATE
     Dosage: 40 MG, QMO (2 INJECTIONS/AMPOULES OF 20 MG)
     Route: 030
     Dates: start: 2006

REACTIONS (32)
  - Bacterial infection [Recovered/Resolved]
  - Tinnitus [Unknown]
  - Peripheral swelling [Not Recovered/Not Resolved]
  - Second primary malignancy [Recovered/Resolved]
  - Seizure [Recovered/Resolved]
  - Hyperglycaemia [Recovered/Resolved]
  - Gait disturbance [Recovered/Resolved]
  - Injection site mass [Not Recovered/Not Resolved]
  - Injection site hypertrophy [Not Recovered/Not Resolved]
  - Hormone level abnormal [Unknown]
  - Fatigue [Recovering/Resolving]
  - Pneumonia aspiration [Recovered/Resolved]
  - Pyrexia [Recovered/Resolved]
  - Weight decreased [Unknown]
  - Needle issue [Not Recovered/Not Resolved]
  - Fall [Recovered/Resolved]
  - Neoplasm [Unknown]
  - Weight increased [Recovered/Resolved]
  - Pain [Recovering/Resolving]
  - Gait inability [Recovered/Resolved]
  - Deafness bilateral [Recovering/Resolving]
  - Pain in extremity [Recovering/Resolving]
  - Meningioma [Recovered/Resolved]
  - Cholelithiasis [Not Recovered/Not Resolved]
  - Anticonvulsant drug level increased [Unknown]
  - Product formulation issue [Unknown]
  - Hyperprolactinaemia [Not Recovered/Not Resolved]
  - Apparent death [Unknown]
  - Aphasia [Recovered/Resolved]
  - Nephrolithiasis [Unknown]
  - Insulin-like growth factor increased [Not Recovered/Not Resolved]
  - Malaise [Unknown]

NARRATIVE: CASE EVENT DATE: 2011
